FAERS Safety Report 18117061 (Version 3)
Quarter: 2020Q3

REPORT INFORMATION
  Report Type: Spontaneous
  Country: HU (occurrence: HU)
  Receive Date: 20200805
  Receipt Date: 20200901
  Transmission Date: 20201103
  Serious: Yes (Disabling, Other)
  Sender: FDA-Public Use
  Company Number: NVSC2020HU215120

PATIENT
  Age: 33 Year
  Sex: Male
  Weight: 75 kg

DRUGS (3)
  1. PARETIN 20 MG FILMTABLETTA [Suspect]
     Active Substance: PAROXETINE HYDROCHLORIDE
     Indication: PANIC DISORDER
     Dosage: 20 MG, QD
     Route: 048
     Dates: start: 201008
  2. FOLFOX?4 [Suspect]
     Active Substance: FLUOROURACIL\LEUCOVORIN CALCIUM\OXALIPLATIN
     Indication: PRODUCT USED FOR UNKNOWN INDICATION
     Dosage: UNK
     Route: 065
     Dates: start: 20200623
  3. COSENTYX [Suspect]
     Active Substance: SECUKINUMAB
     Indication: PSORIASIS
     Dosage: 300 MG, QMO
     Route: 058
     Dates: start: 20170607, end: 202002

REACTIONS (8)
  - Gastric neoplasm [Unknown]
  - Hepatic enzyme increased [Unknown]
  - Dyspepsia [Unknown]
  - Lymphoid tissue hyperplasia [Unknown]
  - Oropharyngeal pain [Unknown]
  - Blood lactate dehydrogenase increased [Recovering/Resolving]
  - Gastrooesophageal reflux disease [Unknown]
  - Metastases to liver [Unknown]

NARRATIVE: CASE EVENT DATE: 20200224
